FAERS Safety Report 5661538-2 (Version None)
Quarter: 2008Q1

REPORT INFORMATION
  Report Type: 
  Country: None (occurrence: None)
  Receive Date: 20080312
  Receipt Date: 20080304
  Transmission Date: 20080703
  Serious: Yes (Other)
  Sender: FDA-Public Use
  Company Number: PHRM2008FR00997

PATIENT

DRUGS (1)
  1. FORADIL [Suspect]
     Indication: SUICIDE ATTEMPT
     Dosage: 15 DF, ONCE/SINGLE
     Route: 048
     Dates: start: 20080101, end: 20080101

REACTIONS (3)
  - INCORRECT ROUTE OF DRUG ADMINISTRATION [None]
  - INTENTIONAL OVERDOSE [None]
  - SUICIDE ATTEMPT [None]
